FAERS Safety Report 7016364-9 (Version None)
Quarter: 2010Q3

REPORT INFORMATION
  Report Type: 
  Country: None (occurrence: None)
  Receive Date: 20100909
  Receipt Date: 20100408
  Transmission Date: 20110219
  Serious: No
  Sender: FDA-Public Use
  Company Number: 2010SP020586

PATIENT
  Sex: Female

DRUGS (7)
  1. SAPHRIS [Suspect]
     Indication: PRODUCT USED FOR UNKNOWN INDICATION
     Dosage: 5 MG;QD;SL
     Route: 060
     Dates: start: 20100301, end: 20100401
  2. AMBIEN (CON.) [Concomitant]
  3. KLONOPIN (CON.) [Concomitant]
  4. EQUETRO (CON.) [Concomitant]
  5. CYMBALTA (CON.) [Concomitant]
  6. VALTREX (CON.) [Concomitant]
  7. ZOLOFT (CON.) [Concomitant]

REACTIONS (8)
  - BLOOD CREATINE INCREASED [None]
  - BLOOD CREATINE PHOSPHOKINASE INCREASED [None]
  - BLOOD UREA INCREASED [None]
  - DYSPHAGIA [None]
  - GAIT DISTURBANCE [None]
  - INAPPROPRIATE SCHEDULE OF DRUG ADMINISTRATION [None]
  - PYREXIA [None]
  - UNDERDOSE [None]
